FAERS Safety Report 9056928 (Version 1)
Quarter: 2013Q1

REPORT INFORMATION
  Report Type: Report from Study
  Country: US (occurrence: US)
  Receive Date: 20130131
  Receipt Date: 20130131
  Transmission Date: 20140127
  Serious: No
  Sender: FDA-Public Use
  Company Number: US-ABBOTT-12P-163-0980234-00

PATIENT
  Age: 20 Year
  Sex: Male

DRUGS (8)
  1. HUMIRA [Suspect]
     Indication: CROHN^S DISEASE
     Dates: start: 20120815, end: 20120815
  2. HUMIRA [Suspect]
     Dates: start: 20120829, end: 20120829
  3. HUMIRA [Suspect]
     Dates: start: 20120913
  4. ASACOL [Concomitant]
     Indication: CROHN^S DISEASE
  5. SEROQUEL [Concomitant]
     Indication: INSOMNIA
     Dosage: AT BEDTIME
  6. LANSOPRAZOLE [Concomitant]
     Indication: GASTROOESOPHAGEAL REFLUX DISEASE
  7. FERROUS SULFATE [Concomitant]
     Indication: IRON METABOLISM DISORDER
  8. PREDNISONE [Concomitant]
     Indication: CROHN^S DISEASE

REACTIONS (5)
  - Fatigue [Unknown]
  - Dizziness [Recovered/Resolved]
  - Dizziness [Recovered/Resolved]
  - Dizziness [Recovered/Resolved]
  - Dizziness [Unknown]
